FAERS Safety Report 14131844 (Version 1)
Quarter: 2017Q4

REPORT INFORMATION
  Report Type: Report from Study
  Country: US (occurrence: US)
  Receive Date: 20171026
  Receipt Date: 20171026
  Transmission Date: 20180321
  Serious: Yes (Other)
  Sender: FDA-Public Use
  Company Number: US-MYLANLABS-2017M1061322

PATIENT
  Age: 66 Year
  Sex: Female

DRUGS (2)
  1. CLOZAPINE. [Suspect]
     Active Substance: CLOZAPINE
     Dosage: UNK, HS
  2. CLOZAPINE. [Suspect]
     Active Substance: CLOZAPINE
     Indication: SCHIZOPHRENIA
     Dosage: UNK UNK, AM

REACTIONS (10)
  - Lymphocyte percentage increased [Not Recovered/Not Resolved]
  - Hallucination, auditory [Unknown]
  - Red blood cell count decreased [Not Recovered/Not Resolved]
  - Monocyte percentage increased [Not Recovered/Not Resolved]
  - Globulins decreased [Unknown]
  - Fall [Unknown]
  - Blood 25-hydroxycholecalciferol decreased [Unknown]
  - Living in residential institution [Unknown]
  - Protein total decreased [Unknown]
  - Neutrophil percentage decreased [Recovered/Resolved]

NARRATIVE: CASE EVENT DATE: 20170912
